FAERS Safety Report 5471008-2 (Version None)
Quarter: 2007Q3

REPORT INFORMATION
  Report Type: 
  Country: None (occurrence: None)
  Receive Date: 20070928
  Receipt Date: 20070921
  Transmission Date: 20080115
  Serious: Yes (Life-Threatening, Hospitalization)
  Sender: FDA-Public Use
  Company Number: B0477235A

PATIENT
  Age: 60 Year
  Sex: Male

DRUGS (6)
  1. PAXIL [Suspect]
     Indication: DEPRESSION
     Dosage: 10MG PER DAY
     Route: 048
     Dates: start: 20070611, end: 20070613
  2. LEVOTOMIN [Suspect]
     Route: 048
     Dates: start: 20070614
  3. MS CONTIN [Concomitant]
     Indication: PAIN
     Dosage: 600MG PER DAY
     Route: 048
     Dates: start: 20070611, end: 20070611
  4. MS CONTIN [Concomitant]
     Dosage: 420MG PER DAY
     Route: 048
     Dates: start: 20070612, end: 20070618
  5. MS CONTIN [Concomitant]
     Dosage: 300MG PER DAY
     Route: 048
     Dates: start: 20070619
  6. CALONAL [Concomitant]
     Indication: PAIN
     Dosage: 3G PER DAY
     Route: 048
     Dates: start: 20070518, end: 20070619

REACTIONS (13)
  - ACTIVATION SYNDROME [None]
  - AGITATION [None]
  - AKATHISIA [None]
  - ANXIETY [None]
  - IMPULSIVE BEHAVIOUR [None]
  - INTENTIONAL SELF-INJURY [None]
  - IRRITABILITY [None]
  - PRESSURE OF SPEECH [None]
  - PSYCHOMOTOR HYPERACTIVITY [None]
  - RESTLESSNESS [None]
  - SEDATION [None]
  - SOMNOLENCE [None]
  - SUICIDE ATTEMPT [None]
